FAERS Safety Report 8545665-8 (Version None)
Quarter: 2012Q3

REPORT INFORMATION
  Report Type: 
  Country: None (occurrence: None)
  Receive Date: 20120727
  Receipt Date: 20120723
  Transmission Date: 20120928
  Serious: Yes (Hospitalization, Other)
  Sender: FDA-Public Use
  Company Number: US-009507513-1207USA010238

PATIENT

DRUGS (14)
  1. VITAMINS (UNSPECIFIED) [Concomitant]
  2. ASCORBIC ACID [Concomitant]
  3. DOCUSATE SODIUM [Concomitant]
  4. HYDROCHLOROTHIAZIDE [Concomitant]
  5. ASPIRIN [Concomitant]
  6. CHOLECALCIFEROL [Concomitant]
  7. INDOMETHACIN [Concomitant]
  8. LISINOPRIL [Concomitant]
  9. SERTRALINE HYDROCHLORIDE [Concomitant]
  10. SIMVASTATIN [Concomitant]
  11. JANUVIA [Suspect]
     Dosage: 50 MG, QD
     Route: 048
  12. SPIRONOLACTONE [Concomitant]
  13. ALLOPURINOL [Concomitant]
  14. ADVAIR DISKUS 100/50 [Concomitant]

REACTIONS (1)
  - PANCREATITIS ACUTE [None]
